FAERS Safety Report 11926638 (Version 2)
Quarter: 2016Q1

REPORT INFORMATION
  Report Type: Report from Study
  Country: BR (occurrence: BR)
  Receive Date: 20160119
  Receipt Date: 20160204
  Transmission Date: 20160526
  Serious: Yes (Hospitalization)
  Sender: FDA-Public Use
  Company Number: PHHY2016BR005614

PATIENT
  Sex: Male
  Weight: 20 kg

DRUGS (2)
  1. EXJADE [Suspect]
     Active Substance: DEFERASIROX
     Indication: SICKLE CELL ANAEMIA
     Dosage: 30 MG/KG, (625 MG) (1 DF OF 500 MG AND 1 DF OF 125 MG), QD
     Route: 048
     Dates: start: 20140814
  2. EXJADE [Suspect]
     Active Substance: DEFERASIROX
     Dosage: 15 MG/KG, QD (250 MG)
     Route: 048

REACTIONS (1)
  - Pneumonia [Recovered/Resolved]
